FAERS Safety Report 4269724-3 (Version None)
Quarter: 2004Q1

REPORT INFORMATION
  Report Type: 
  Country: None (occurrence: None)
  Receive Date: 20040112
  Receipt Date: 20040107
  Transmission Date: 20041129
  Serious: Yes (Death)
  Sender: FDA-Public Use
  Company Number: KII-1997-0000792

PATIENT
  Sex: Male

DRUGS (1)
  1. OXYCODONE HCL [Suspect]
     Dosage: 10 MG, Q12H, ORAL
     Route: 048

REACTIONS (2)
  - CONDITION AGGRAVATED [None]
  - PROSTATE CANCER [None]
